FAERS Safety Report 9624317 (Version 2)
Quarter: 2013Q4

REPORT INFORMATION
  Report Type: Report from Study
  Country: DE (occurrence: DE)
  Receive Date: 20131015
  Receipt Date: 20131015
  Transmission Date: 20140711
  Serious: Yes (Hospitalization, Other)
  Sender: FDA-Public Use
  Company Number: DE-TEVA-422252GER

PATIENT
  Sex: Female
  Weight: 80 kg

DRUGS (2)
  1. COPAXONE [Suspect]
     Indication: MULTIPLE SCLEROSIS
     Route: 058
     Dates: start: 20120425
  2. FAMPYRA [Concomitant]
     Indication: MUSCLE SPASTICITY
     Route: 048
     Dates: start: 20120502

REACTIONS (1)
  - B-cell lymphoma [Not Recovered/Not Resolved]
